FAERS Safety Report 21713396 (Version 1)
Quarter: 2022Q4

REPORT INFORMATION
  Report Type: Spontaneous
  Country: US (occurrence: US)
  Receive Date: 20221212
  Receipt Date: 20221212
  Transmission Date: 20230112
  Serious: Yes (Hospitalization)
  Sender: FDA-Public Use
  Company Number: US-ORG100016242-2022000238

PATIENT
  Sex: Female

DRUGS (5)
  1. EXPAREL [Suspect]
     Active Substance: BUPIVACAINE
     Indication: Transversus abdominis plane block
     Dosage: 10CC 0.5% PLAIN BUPIVACAINE WITH?10CC EXPAREL AND 20CC NORMAL SALINE ON EACH SIDE
     Route: 065
  2. BUPIVACAINE [Suspect]
     Active Substance: BUPIVACAINE
     Indication: Transversus abdominis plane block
     Dosage: 10CC 0.5% PLAIN BUPIVACAINE WITH?10CC EXPAREL AND 20CC NORMAL SALINE ON EACH SIDE
     Route: 065
  3. SODIUM CHLORIDE [Concomitant]
     Active Substance: SODIUM CHLORIDE
     Indication: Transversus abdominis plane block
     Dosage: 10CC 0.5% PLAIN BUPIVACAINE WITH?10CC EXPAREL AND 20CC NORMAL SALINE ON EACH SIDE
     Route: 065
  4. ROPIVACAINE [Concomitant]
     Active Substance: ROPIVACAINE
     Indication: Epidural anaesthesia
     Dosage: NOT PROVIDED
     Route: 008
  5. LIDOCAINE [Concomitant]
     Active Substance: LIDOCAINE
     Indication: Epidural anaesthesia
     Dosage: NOT PROVIDED
     Route: 008

REACTIONS (4)
  - Local anaesthetic systemic toxicity [Recovered/Resolved]
  - Altered state of consciousness [Recovered/Resolved]
  - Generalised tonic-clonic seizure [Recovered/Resolved]
  - Labelled drug-drug interaction medication error [Recovered/Resolved]
